FAERS Safety Report 15969558 (Version 2)
Quarter: 2019Q1

REPORT INFORMATION
  Report Type: Spontaneous
  Country: GB (occurrence: GB)
  Receive Date: 20190215
  Receipt Date: 20190223
  Transmission Date: 20190418
  Serious: Yes (Life-Threatening)
  Sender: FDA-Public Use
  Company Number: GB-MYLANLABS-2018M1067887

PATIENT
  Age: 81 Year
  Sex: Male

DRUGS (2)
  1. CLOZARIL [Suspect]
     Active Substance: CLOZAPINE
     Indication: SCHIZOPHRENIA
     Dosage: UNK
     Route: 048
     Dates: start: 20180302, end: 20181203
  2. ROTIGOTINE [Concomitant]
     Active Substance: ROTIGOTINE
     Indication: PARKINSON^S DISEASE
     Dosage: UNK

REACTIONS (10)
  - Agitation [Unknown]
  - Urinary incontinence [Unknown]
  - Aggression [Unknown]
  - Dementia [Unknown]
  - Fatigue [Unknown]
  - Sedation [Unknown]
  - Constipation [Unknown]
  - Salivary hypersecretion [Unknown]
  - Heart rate abnormal [Unknown]
  - Dysphagia [Unknown]

NARRATIVE: CASE EVENT DATE: 2018
